FAERS Safety Report 4450017-6 (Version None)
Quarter: 2004Q3

REPORT INFORMATION
  Report Type: 
  Country: None (occurrence: None)
  Receive Date: 20040915
  Receipt Date: 20040906
  Transmission Date: 20050211
  Serious: Yes (Other)
  Sender: FDA-Public Use
  Company Number: PHFR2004GB03415

PATIENT

DRUGS (1)
  1. NEORAL [Suspect]
     Indication: HEART TRANSPLANT
     Route: 048

REACTIONS (1)
  - INTESTINAL OBSTRUCTION [None]
